FAERS Safety Report 8272259-4 (Version None)
Quarter: 2012Q2

REPORT INFORMATION
  Report Type: 
  Country: None (occurrence: None)
  Receive Date: 20120410
  Receipt Date: 20120328
  Transmission Date: 20120825
  Serious: Yes (Hospitalization)
  Sender: FDA-Public Use
  Company Number: JP-CELGENEUS-087-50794-12040106

PATIENT
  Sex: Male
  Weight: 60 kg

DRUGS (5)
  1. EXJADE [Concomitant]
     Route: 065
  2. ZYRTEC [Concomitant]
     Route: 065
  3. VIDAZA [Suspect]
     Dosage: 75 MILLIGRAM/SQ. METER
     Route: 058
     Dates: start: 20110516, end: 20110522
  4. VIDAZA [Suspect]
     Dosage: 75 MILLIGRAM/SQ. METER
     Route: 058
     Dates: start: 20110705, end: 20110711
  5. OMEPRAZOLE [Concomitant]
     Route: 065

REACTIONS (2)
  - ENTEROCOLITIS [None]
  - STOMATITIS [None]
